FAERS Safety Report 25128082 (Version 2)
Quarter: 2025Q2

REPORT INFORMATION
  Report Type: Report from Study
  Country: CA (occurrence: CA)
  Receive Date: 20250327
  Receipt Date: 20250403
  Transmission Date: 20250717
  Serious: Yes (Other)
  Sender: ALEXION PHARMACEUTICALS
  Company Number: CA-AstraZeneca-CH-00832490A

PATIENT
  Age: 63 Year

DRUGS (2)
  1. ANIFROLUMAB [Suspect]
     Active Substance: ANIFROLUMAB
     Indication: Systemic lupus erythematosus
     Dosage: 300 MILLIGRAM, Q4W
     Route: 065
  2. ANIFROLUMAB [Suspect]
     Active Substance: ANIFROLUMAB
     Indication: Autoantibody positive

REACTIONS (10)
  - Antiphospholipid syndrome [Unknown]
  - Neoplasm malignant [Unknown]
  - Rhupus syndrome [Unknown]
  - Gait disturbance [Unknown]
  - Pain [Unknown]
  - Gastrooesophageal reflux disease [Unknown]
  - Burning sensation [Unknown]
  - Inappropriate schedule of product administration [Recovering/Resolving]
  - Ear, nose and throat infection [Recovering/Resolving]
  - Vomiting [Recovering/Resolving]
